FAERS Safety Report 9701776 (Version 1)
Quarter: 2013Q4

REPORT INFORMATION
  Report Type: Spontaneous
  Country: JP (occurrence: JP)
  Receive Date: 20131121
  Receipt Date: 20131121
  Transmission Date: 20140711
  Serious: Yes (Other)
  Sender: FDA-Public Use
  Company Number: JP-TAKEDA-2013TJP002922

PATIENT
  Sex: 0

DRUGS (1)
  1. ACTOS TABLETS 15 [Suspect]
     Indication: DIABETES MELLITUS
     Dosage: 15 MG, 1 DAYS
     Route: 048

REACTIONS (1)
  - Brain oedema [Unknown]
